FAERS Safety Report 7241182-6 (Version None)
Quarter: 2011Q1

REPORT INFORMATION
  Report Type: 
  Country: None (occurrence: None)
  Receive Date: 20110120
  Receipt Date: 20110120
  Transmission Date: 20110831
  Serious: Yes (Other)
  Sender: FDA-Public Use
  Company Number: None

PATIENT
  Age: 74 Year
  Sex: Male
  Weight: 63.5036 kg

DRUGS (1)
  1. LISINOPRIL [Suspect]
     Indication: LIVER DISORDER
     Dosage: ONE DAILY
     Dates: start: 20101115, end: 20101204

REACTIONS (5)
  - COUGH [None]
  - DRY MOUTH [None]
  - SEXUAL DYSFUNCTION [None]
  - DIARRHOEA [None]
  - CHEST PAIN [None]
